FAERS Safety Report 9964189 (Version 3)
Quarter: 2014Q3

REPORT INFORMATION
  Report Type: Spontaneous
  Country: DE (occurrence: DE)
  Receive Date: 20140305
  Receipt Date: 20140701
  Transmission Date: 20150326
  Serious: Yes (Other)
  Sender: FDA-Public Use
  Company Number: DE-JNJFOC-20130211173

PATIENT

DRUGS (1)
  1. INFLIXIMAB, RECOMBINANT [Suspect]
     Active Substance: INFLIXIMAB
     Indication: ANKYLOSING SPONDYLITIS
     Route: 042

REACTIONS (10)
  - Respiratory tract infection [Unknown]
  - Infection [Unknown]
  - Infusion related reaction [Unknown]
  - Gastrointestinal infection [Unknown]
  - Genitourinary tract infection [Unknown]
  - Inflammatory bowel disease [Unknown]
  - Psoriasis [Unknown]
  - Skin infection [Unknown]
  - Skin disorder [Unknown]
  - Hepatic enzyme increased [Unknown]
